FAERS Safety Report 5723996-4 (Version None)
Quarter: 2008Q2

REPORT INFORMATION
  Report Type: 
  Country: None (occurrence: None)
  Receive Date: 20080430
  Receipt Date: 20080424
  Transmission Date: 20081010
  Serious: Yes (Other)
  Sender: FDA-Public Use
  Company Number: PHEH2008US04007

PATIENT
  Age: 79 Year
  Sex: Female

DRUGS (3)
  1. ATENOLOL [Suspect]
     Dosage: UNK, UNK
  2. DIOVAN [Suspect]
     Dosage: 80 MG, UNK
  3. DIOVAN [Suspect]
     Dosage: 160 MG, UNK

REACTIONS (7)
  - BRADYCARDIA [None]
  - BREAST CANCER IN SITU [None]
  - LOSS OF CONSCIOUSNESS [None]
  - MAMMOGRAM ABNORMAL [None]
  - MASTECTOMY [None]
  - STRESS [None]
  - SYNCOPE [None]
